FAERS Safety Report 10949860 (Version 1)
Quarter: 2015Q1

REPORT INFORMATION
  Report Type: Spontaneous
  Country: US (occurrence: None)
  Receive Date: 20150323
  Receipt Date: 20150323
  Transmission Date: 20150721
  Serious: Yes (Hospitalization)
  Sender: FDA-Public Use
  Company Number: None

PATIENT
  Age: 41 Year
  Sex: Female

DRUGS (4)
  1. BACLOFEN. [Concomitant]
     Active Substance: BACLOFEN
  2. DRONABINOL. [Concomitant]
     Active Substance: DRONABINOL
  3. AMPYRA [Suspect]
     Active Substance: DALFAMPRIDINE
     Indication: MULTIPLE SCLEROSIS
     Dates: start: 20141014
  4. TECIFIDERA [Concomitant]
     Active Substance: DIMETHYL FUMARATE

REACTIONS (4)
  - General physical health deterioration [None]
  - Multiple sclerosis relapse [None]
  - Asthenia [None]
  - Muscle spasticity [None]

NARRATIVE: CASE EVENT DATE: 20150222
